FAERS Safety Report 4597244-5 (Version None)
Quarter: 2005Q1

REPORT INFORMATION
  Report Type: 
  Country: None (occurrence: None)
  Receive Date: 20050301
  Receipt Date: 20050216
  Transmission Date: 20050727
  Serious: Yes (Other)
  Sender: FDA-Public Use
  Company Number: 2005033227

PATIENT
  Age: 11 Year
  Sex: Female

DRUGS (4)
  1. GENOTROPIN [Suspect]
     Indication: HYPOPITUITARISM
     Dosage: SEE IMAGE
     Route: 058
     Dates: start: 20030616, end: 20040921
  2. GENOTROPIN [Suspect]
     Indication: HYPOPITUITARISM
     Dosage: SEE IMAGE
     Route: 058
     Dates: start: 20020612
  3. OXYBUTYNIN CHLORIDE [Concomitant]
  4. CEFACLOR [Concomitant]

REACTIONS (4)
  - EAR PAIN [None]
  - HYPOACUSIS [None]
  - PITUITARY ENLARGEMENT [None]
  - TINNITUS [None]
